FAERS Safety Report 9098774 (Version 3)
Quarter: 2013Q2

REPORT INFORMATION
  Report Type: Report from Study
  Country: US (occurrence: US)
  Receive Date: 20130211
  Receipt Date: 20130416
  Transmission Date: 20140414
  Serious: Yes (Death, Hospitalization)
  Sender: FDA-Public Use
  Company Number: US-ACTELION-A-US2013-77983

PATIENT
  Age: 58 Year
  Sex: Female

DRUGS (5)
  1. VELETRI [Suspect]
     Indication: PULMONARY ARTERIAL HYPERTENSION
     Dosage: 11 NG/KG, PER MIN
     Route: 042
     Dates: start: 20130112
  2. VELETRI [Suspect]
     Dosage: 8 NG/KG, PER MIN
     Route: 042
  3. TRACLEER [Suspect]
     Indication: PULMONARY ARTERIAL HYPERTENSION
     Dosage: UNK
     Route: 048
  4. COUMADIN [Concomitant]
  5. ADCIRCA [Concomitant]

REACTIONS (15)
  - Death [Fatal]
  - Myocardial infarction [Unknown]
  - Cardiac arrest [Unknown]
  - Stent placement [Unknown]
  - Nausea [Unknown]
  - Pain in jaw [Unknown]
  - Flushing [Unknown]
  - Diarrhoea [Unknown]
  - Malaise [Unknown]
  - Dyspepsia [Unknown]
  - Chest discomfort [Unknown]
  - Headache [Unknown]
  - Oedema peripheral [Unknown]
  - Dyspnoea exertional [Unknown]
  - Night sweats [Unknown]
